FAERS Safety Report 5317339-8 (Version None)
Quarter: 2007Q2

REPORT INFORMATION
  Report Type: 
  Country: None (occurrence: None)
  Receive Date: 20070504
  Receipt Date: 20070423
  Transmission Date: 20071010
  Serious: Yes (Other)
  Sender: FDA-Public Use
  Company Number: US-PFIZER INC-2007034286

PATIENT
  Sex: Male

DRUGS (3)
  1. SERTRALINE [Suspect]
     Dosage: TEXT:UNKNOWN
     Route: 064
  2. RISPERIDONE [Suspect]
     Dosage: TEXT:UNKNOWN
     Route: 064
  3. FLUOXETINE [Suspect]
     Dosage: TEXT:UNKNOWN
     Route: 064

REACTIONS (2)
  - DRUG EXPOSURE DURING PREGNANCY [None]
  - MYOTONIA [None]
